FAERS Safety Report 22966385 (Version 2)
Quarter: 2023Q4

REPORT INFORMATION
  Report Type: Spontaneous
  Country: IT (occurrence: IT)
  Receive Date: 20230921
  Receipt Date: 20231106
  Transmission Date: 20240110
  Serious: Yes (Other)
  Sender: FDA-Public Use
  Company Number: IT-002147023-NVSC2020IT276311

PATIENT
  Sex: Male

DRUGS (12)
  1. IMATINIB [Suspect]
     Active Substance: IMATINIB
     Indication: Gastrointestinal stromal tumour
     Dosage: 400 MILLIGRAM, QD
     Route: 065
     Dates: start: 20080701, end: 20120919
  2. IMATINIB [Suspect]
     Active Substance: IMATINIB
     Dosage: 400 MILLIGRAM, QD
     Route: 065
     Dates: start: 20220811
  3. NILOTINIB [Suspect]
     Active Substance: NILOTINIB
     Indication: Chronic myeloid leukaemia
     Dosage: 800 MILLIGRAM, QD (400 MG, BID)
     Route: 065
     Dates: start: 20180419
  4. NILOTINIB [Suspect]
     Active Substance: NILOTINIB
     Dosage: 800 MILLIGRAM, QD
     Route: 065
  5. NILOTINIB [Suspect]
     Active Substance: NILOTINIB
     Dosage: 600 MILLIGRAM, QD
     Route: 065
     Dates: start: 2013
  6. NILOTINIB [Suspect]
     Active Substance: NILOTINIB
     Dosage: 400 MILLIGRAM, QD
     Route: 065
  7. NILOTINIB [Suspect]
     Active Substance: NILOTINIB
     Dosage: 800 MILLIGRAM, QD
     Route: 065
  8. TICLOPIDINE [Concomitant]
     Active Substance: TICLOPIDINE
     Indication: Product used for unknown indication
     Dosage: 500 MILLIGRAM, QD (250 MG, BID)
     Route: 065
     Dates: start: 20070506, end: 20080728
  9. OMEPRAZOLE [Concomitant]
     Active Substance: OMEPRAZOLE
     Indication: Product used for unknown indication
     Dosage: 20 MILLIGRAM, QD
     Route: 065
     Dates: start: 20080506
  10. Unipril [Concomitant]
     Indication: Product used for unknown indication
     Dosage: 10 MILLIGRAM, QD
     Route: 065
     Dates: start: 20130212
  11. ENALAPRIL [Concomitant]
     Active Substance: ENALAPRIL
     Indication: Product used for unknown indication
     Dosage: 5 MILLIGRAM, QD
     Route: 065
     Dates: start: 20070605
  12. ALLOPURINOL [Concomitant]
     Active Substance: ALLOPURINOL
     Indication: Product used for unknown indication
     Dosage: 300 MILLIGRAM, QD
     Route: 065
     Dates: start: 20070506, end: 20080827

REACTIONS (5)
  - Carotid arteriosclerosis [Unknown]
  - Haematotoxicity [Unknown]
  - Hypercholesterolaemia [Recovered/Resolved]
  - Drug intolerance [Unknown]
  - Drug resistance [Unknown]

NARRATIVE: CASE EVENT DATE: 20130711
